FAERS Safety Report 21688361 (Version 2)
Quarter: 2023Q1

REPORT INFORMATION
  Report Type: Spontaneous
  Country: US (occurrence: None)
  Receive Date: 20221206
  Receipt Date: 20230215
  Transmission Date: 20230417
  Serious: Yes (Other)
  Sender: FDA-Public Use
  Company Number: US-ROCHE-3233121

PATIENT
  Sex: Female

DRUGS (2)
  1. XOLAIR [Suspect]
     Active Substance: OMALIZUMAB
     Indication: Urticaria
     Dosage: UNDER THE SKIN
     Route: 058
     Dates: start: 20220621
  2. STERILE WATER [Concomitant]
     Active Substance: WATER
     Dosage: 10ML=1VL

REACTIONS (1)
  - Intracranial pressure increased [Unknown]
